FAERS Safety Report 19025763 (Version 1)
Quarter: 2021Q1

REPORT INFORMATION
  Report Type: Spontaneous
  Country: US (occurrence: US)
  Receive Date: 20210316
  Receipt Date: 20210316
  Transmission Date: 20210420
  Serious: Yes (Hospitalization)
  Sender: FDA-Public Use
  Company Number: None

PATIENT
  Age: 67 Year
  Sex: Male

DRUGS (2)
  1. AMILORIDE (AMILORIDE HCL 5 MG TAB) [Suspect]
     Active Substance: AMILORIDE HYDROCHLORIDE
     Indication: OEDEMA
     Route: 048
     Dates: start: 20191002, end: 20191030
  2. AMILORIDE (AMILORIDE HCL 5 MG TAB) [Suspect]
     Active Substance: AMILORIDE HYDROCHLORIDE
     Indication: HYPOMAGNESAEMIA
     Route: 048
     Dates: start: 20191002, end: 20191030

REACTIONS (1)
  - Hyperkalaemia [None]

NARRATIVE: CASE EVENT DATE: 20191031
